FAERS Safety Report 9899377 (Version 1)
Quarter: 2014Q1

REPORT INFORMATION
  Report Type: Spontaneous
  Country: US (occurrence: US)
  Receive Date: 20140214
  Receipt Date: 20140214
  Transmission Date: 20141002
  Serious: No
  Sender: FDA-Public Use
  Company Number: US-PFIZER INC-2014042127

PATIENT
  Sex: Female

DRUGS (1)
  1. PRISTIQ [Suspect]
     Indication: NEURALGIA
     Dosage: UNK

REACTIONS (4)
  - Oesophagitis [Unknown]
  - Dyspepsia [Unknown]
  - Burn oesophageal [Unknown]
  - Off label use [Unknown]
